FAERS Safety Report 8008950-4 (Version None)
Quarter: 2011Q4

REPORT INFORMATION
  Report Type: 
  Country: None (occurrence: None)
  Receive Date: 20111227
  Receipt Date: 20111219
  Transmission Date: 20120403
  Serious: Yes (Hospitalization, Other)
  Sender: FDA-Public Use
  Company Number: BE-TEVA-314831ISR

PATIENT
  Age: 70 Year
  Sex: Male

DRUGS (3)
  1. HALOPERIDOL [Suspect]
  2. SOTALOL HCL [Suspect]
  3. MOXIFLOXACIN [Suspect]

REACTIONS (4)
  - RESPIRATORY TRACT INFECTION [None]
  - VENTRICULAR TACHYCARDIA [None]
  - LOSS OF CONSCIOUSNESS [None]
  - ELECTROCARDIOGRAM T WAVE INVERSION [None]
